FAERS Safety Report 6844590-8 (Version None)
Quarter: 2010Q2

REPORT INFORMATION
  Report Type: 
  Country: None (occurrence: None)
  Receive Date: 20100629
  Receipt Date: 20100503
  Transmission Date: 20101027
  Serious: Yes (Other)
  Sender: FDA-Public Use
  Company Number: US-WYE-H15068310

PATIENT
  Age: 62 Year
  Sex: Female
  Weight: 65.83 kg

DRUGS (1)
  1. PRISTIQ [Suspect]
     Indication: DEPRESSION
     Dates: start: 20090101, end: 20090101

REACTIONS (2)
  - CRYING [None]
  - FEELING ABNORMAL [None]
